FAERS Safety Report 9619391 (Version 1)
Quarter: 2013Q4

REPORT INFORMATION
  Report Type: Spontaneous
  Country: US (occurrence: US)
  Receive Date: 20131014
  Receipt Date: 20131014
  Transmission Date: 20140711
  Serious: No
  Sender: FDA-Public Use
  Company Number: US-PFIZER INC-2013288952

PATIENT
  Sex: Female

DRUGS (9)
  1. FLAGYL [Suspect]
  2. MORPHINE SULFATE [Suspect]
     Dosage: UNK
  3. INSULIN [Suspect]
     Dosage: 50 IU, AS NEEDED (QHS)
  4. CODEINE [Suspect]
     Dosage: UNK
  5. TALWIN [Suspect]
     Dosage: UNK
  6. TAGAMET [Suspect]
     Dosage: UNK
  7. VICODIN [Suspect]
     Dosage: UNK
  8. TETANUS TOXOID [Suspect]
     Dosage: UNK
  9. LANTUS [Suspect]
     Dosage: UNK

REACTIONS (1)
  - Drug hypersensitivity [Unknown]
